FAERS Safety Report 17531790 (Version 1)
Quarter: 2020Q1

REPORT INFORMATION
  Report Type: Spontaneous
  Country: US (occurrence: US)
  Receive Date: 20200311
  Receipt Date: 20200311
  Transmission Date: 20200409
  Serious: Yes (Disabling, Other)
  Sender: FDA-Public Use
  Company Number: US-REGENERON PHARMACEUTICALS, INC.-2020-24086

PATIENT

DRUGS (1)
  1. EYLEA [Suspect]
     Active Substance: AFLIBERCEPT
     Indication: PRODUCT USED FOR UNKNOWN INDICATION
     Dosage: MORE THAN 0.05 ML

REACTIONS (3)
  - Wrong technique in product usage process [Unknown]
  - Intraocular pressure increased [Unknown]
  - Blindness [Unknown]

NARRATIVE: CASE EVENT DATE: 20200225
